FAERS Safety Report 4631419-1 (Version None)
Quarter: 2005Q2

REPORT INFORMATION
  Report Type: 
  Country: None (occurrence: None)
  Receive Date: 20050407
  Receipt Date: 20050329
  Transmission Date: 20051028
  Serious: No
  Sender: FDA-Public Use
  Company Number: 2005UW04889

PATIENT
  Age: 64 Year
  Sex: Female
  Weight: 67.131 kg

DRUGS (3)
  1. SEROQUEL [Suspect]
     Indication: VESTIBULITIS
     Dosage: 100 MG QOD PO
     Route: 048
  2. BLOOD PRESSURE MEDICATION [Concomitant]
  3. KETAMINE HCL [Concomitant]

REACTIONS (3)
  - FALL [None]
  - HALLUCINATION [None]
  - LOSS OF CONSCIOUSNESS [None]
